FAERS Safety Report 5075949-X (Version None)
Quarter: 2006Q3

REPORT INFORMATION
  Report Type: 
  Country: None (occurrence: None)
  Receive Date: 20060809
  Receipt Date: 20060728
  Transmission Date: 20061208
  Serious: Yes (Other)
  Sender: FDA-Public Use
  Company Number: US-AMGEN-US188066

PATIENT
  Sex: Female

DRUGS (10)
  1. ARANESP [Suspect]
     Indication: ANAEMIA
     Dates: start: 20040101
  2. ASPIRIN [Concomitant]
  3. PLAVIX [Concomitant]
  4. ATACAND [Concomitant]
  5. FOLTX [Concomitant]
  6. LIPITOR [Concomitant]
  7. CALCIUM GLUCONATE [Concomitant]
  8. SYNTHROID [Concomitant]
  9. ALLOPURINOL [Concomitant]
  10. LEUKERAN [Concomitant]

REACTIONS (2)
  - HAEMOGLOBIN DECREASED [None]
  - MYELODYSPLASTIC SYNDROME [None]
